FAERS Safety Report 17843524 (Version 6)
Quarter: 2021Q2

REPORT INFORMATION
  Report Type: Spontaneous
  Country: US (occurrence: US)
  Receive Date: 20200531
  Receipt Date: 20210528
  Transmission Date: 20210717
  Serious: Yes (Hospitalization, Other)
  Sender: FDA-Public Use
  Company Number: US-HIKMA PHARMACEUTICALS USA INC.-US-H14001-20-02563

PATIENT
  Sex: Female

DRUGS (1)
  1. BOSENTAN. [Suspect]
     Active Substance: BOSENTAN
     Indication: PULMONARY ARTERIAL HYPERTENSION
     Route: 048
     Dates: start: 20190613

REACTIONS (6)
  - Blindness [Unknown]
  - Dyspnoea [Unknown]
  - Reading disorder [Unknown]
  - Herpes zoster [Unknown]
  - Surgery [Unknown]
  - Cerebrovascular accident [Unknown]
